FAERS Safety Report 9071906 (Version 1)
Quarter: 2013Q1

REPORT INFORMATION
  Report Type: Spontaneous
  Country: US (occurrence: US)
  Receive Date: 20130129
  Receipt Date: 20130129
  Transmission Date: 20140127
  Serious: Yes (Death)
  Sender: FDA-Public Use
  Company Number: PHHY2013US007289

PATIENT
  Age: 60 Year
  Sex: Male

DRUGS (10)
  1. METOPROLOL [Suspect]
  2. DIPHENHYDRAMINE [Suspect]
  3. NORTRIPTYLINE [Suspect]
  4. FEXOFENADINE [Suspect]
  5. ATORVASTATIN [Suspect]
  6. CLOPIDOGREL [Suspect]
  7. ACETAMINOPHEN W/DIPHENHYDRAMINE HYDROCHLORIDE [Suspect]
  8. AMLODIPINE W/ OLMESARTAN MEDOXOMIL [Suspect]
  9. SALICYLATES [Suspect]
  10. DOXYLAMINE [Suspect]

REACTIONS (1)
  - Completed suicide [Fatal]
